FAERS Safety Report 12236455 (Version 6)
Quarter: 2018Q1

REPORT INFORMATION
  Report Type: Spontaneous
  Country: DE (occurrence: DE)
  Receive Date: 20160404
  Receipt Date: 20180102
  Transmission Date: 20180508
  Serious: Yes (Hospitalization)
  Sender: FDA-Public Use
  Company Number: DE-BIOGEN-2016BI00211788

PATIENT
  Age: 51 Year
  Sex: Male

DRUGS (1)
  1. TYSABRI [Suspect]
     Active Substance: NATALIZUMAB
     Indication: RELAPSING-REMITTING MULTIPLE SCLEROSIS
     Route: 042
     Dates: start: 200807, end: 201508

REACTIONS (5)
  - Progressive multifocal leukoencephalopathy [Recovered/Resolved with Sequelae]
  - Spinal osteoarthritis [Unknown]
  - Immune reconstitution inflammatory syndrome [Recovered/Resolved]
  - Intervertebral disc protrusion [Unknown]
  - Herpes zoster [Unknown]

NARRATIVE: CASE EVENT DATE: 201507
